FAERS Safety Report 6098266-8 (Version None)
Quarter: 2009Q1

REPORT INFORMATION
  Report Type: 
  Country: None (occurrence: None)
  Receive Date: 20090227
  Receipt Date: 20090223
  Transmission Date: 20090719
  Serious: Yes (Disabling)
  Sender: FDA-Public Use
  Company Number: US-MERCK-0902USA04062

PATIENT
  Age: 14 Year
  Sex: Female

DRUGS (3)
  1. EMEND [Suspect]
     Indication: NAUSEA
     Route: 048
     Dates: start: 20090221, end: 20090221
  2. EMEND [Suspect]
     Route: 048
     Dates: start: 20090222, end: 20090223
  3. FROVA [Concomitant]
     Route: 065

REACTIONS (2)
  - DRUG INEFFECTIVE [None]
  - OFF LABEL USE [None]
